FAERS Safety Report 13540551 (Version 3)
Quarter: 2017Q2

REPORT INFORMATION
  Report Type: Spontaneous
  Country: SE (occurrence: SE)
  Receive Date: 20170512
  Receipt Date: 20170601
  Transmission Date: 20170830
  Serious: Yes (Congenital Anomaly, Other)
  Sender: FDA-Public Use
  Company Number: SE-PFIZER INC-2017204659

PATIENT

DRUGS (3)
  1. SALAZOPYRIN EN [Suspect]
     Active Substance: SULFASALAZINE
     Indication: SPONDYLITIS
     Dosage: 1000 MG, 2X/DAY
     Dates: start: 20160927
  2. OMEPRAZOLE. [Suspect]
     Active Substance: OMEPRAZOLE
     Dosage: UNK
     Dates: start: 20160927, end: 20170201
  3. ORUDIS [Suspect]
     Active Substance: KETOPROFEN
     Dosage: UNK
     Dates: start: 20160927, end: 20170201

REACTIONS (2)
  - Exposure via father [Unknown]
  - Limb reduction defect [Unknown]

NARRATIVE: CASE EVENT DATE: 201704
